FAERS Safety Report 14821100 (Version 1)
Quarter: 2018Q2

REPORT INFORMATION
  Report Type: Spontaneous
  Country: FR (occurrence: FR)
  Receive Date: 20180427
  Receipt Date: 20180427
  Transmission Date: 20180711
  Serious: Yes (Hospitalization, Other)
  Sender: FDA-Public Use
  Company Number: FR-BAUSCH-BL-2018-011951

PATIENT
  Age: 35 Year
  Sex: Female

DRUGS (9)
  1. NORVIR [Concomitant]
     Active Substance: RITONAVIR
     Indication: CONGENITAL HIV INFECTION
  2. PHLOROGLUCINOL [Concomitant]
     Active Substance: PHLOROGLUCINOL
     Indication: CONGENITAL HIV INFECTION
  3. TRUVADA [Concomitant]
     Active Substance: EMTRICITABINE\TENOFOVIR DISOPROXIL FUMARATE
     Indication: CONGENITAL HIV INFECTION
  4. PARACETAMOL [Concomitant]
     Active Substance: ACETAMINOPHEN
     Indication: PAIN
  5. TIVICAY [Concomitant]
     Active Substance: DOLUTEGRAVIR SODIUM
     Indication: CONGENITAL HIV INFECTION
  6. METRONIDAZOLE. [Suspect]
     Active Substance: METRONIDAZOLE
     Indication: LUNG DISORDER
     Route: 042
     Dates: start: 20180320, end: 20180321
  7. CEFOTAXIME SODIUM [Suspect]
     Active Substance: CEFOTAXIME SODIUM
     Indication: LUNG DISORDER
     Route: 042
     Dates: start: 20180320, end: 20180321
  8. PENTACARINAT [Concomitant]
     Active Substance: PENTAMIDINE ISETHIONATE
     Indication: CONGENITAL HIV INFECTION
  9. PREZISTA [Concomitant]
     Active Substance: DARUNAVIR ETHANOLATE
     Indication: CONGENITAL HIV INFECTION

REACTIONS (3)
  - Dermatitis bullous [Recovered/Resolved]
  - Paraesthesia [Recovered/Resolved]
  - Therapeutic product cross-reactivity [Recovered/Resolved]

NARRATIVE: CASE EVENT DATE: 20180321
